FAERS Safety Report 16871691 (Version 2)
Quarter: 2019Q4

REPORT INFORMATION
  Report Type: Report from Study
  Country: CA (occurrence: CA)
  Receive Date: 20191001
  Receipt Date: 20191101
  Transmission Date: 20200122
  Serious: Yes (Death, Hospitalization, Other)
  Sender: FDA-Public Use
  Company Number: CA-AMGEN-CANSL2019158675

PATIENT
  Age: 75 Year
  Sex: Female
  Weight: 70 kg

DRUGS (4)
  1. PROLIA [Suspect]
     Active Substance: DENOSUMAB
     Indication: OSTEOPOROSIS POSTMENOPAUSAL
     Dosage: 60 MILLIGRAM, Q6MO
     Route: 058
     Dates: start: 20160623
  2. VITAMIN D [ERGOCALCIFEROL] [Concomitant]
     Active Substance: ERGOCALCIFEROL
  3. METFORMIN [Concomitant]
     Active Substance: METFORMIN HYDROCHLORIDE
     Indication: DIABETES MELLITUS
     Dosage: 500 MILLIGRAM, BID
     Dates: start: 20170129, end: 20180220
  4. CRESTOR [Concomitant]
     Active Substance: ROSUVASTATIN CALCIUM
     Indication: HYPERLIPIDAEMIA
     Dosage: 5 MILLIGRAM, QD
     Dates: start: 20160831, end: 20170210

REACTIONS (12)
  - Candida pneumonia [Fatal]
  - Delirium [Unknown]
  - Pneumonia [Unknown]
  - Acute pulmonary oedema [Unknown]
  - Monocytosis [Unknown]
  - Septic shock [Unknown]
  - Sepsis [Unknown]
  - Vasculitis [Unknown]
  - Neuropathy peripheral [Unknown]
  - Fibula fracture [Unknown]
  - Respiratory failure [Unknown]
  - Fall [Unknown]

NARRATIVE: CASE EVENT DATE: 2016
